FAERS Safety Report 23759509 (Version 1)
Quarter: 2024Q2

REPORT INFORMATION
  Report Type: Spontaneous
  Country: US (occurrence: None)
  Receive Date: 20240418
  Receipt Date: 20240418
  Transmission Date: 20240716
  Serious: No
  Sender: FDA-Public Use
  Company Number: US-ROCHE-3308005

PATIENT
  Age: 54 Year
  Sex: Female

DRUGS (16)
  1. ESBRIET [Suspect]
     Active Substance: PIRFENIDONE
     Indication: Asthma
     Dosage: TAKE 3 CAPSULE BY MOUTH THREE TIMES A DAY
     Route: 048
  2. ENTRESTO [Concomitant]
     Active Substance: SACUBITRIL\VALSARTAN
     Dosage: 24-26 MG
  3. ALPRAZOLAM [Concomitant]
     Active Substance: ALPRAZOLAM
  4. AMLODIPINE BESYLATE [Concomitant]
     Active Substance: AMLODIPINE BESYLATE
  5. AZATHIOPRINE [Concomitant]
     Active Substance: AZATHIOPRINE
  6. CARVEDILOL [Concomitant]
     Active Substance: CARVEDILOL
  7. DALIRESP [Concomitant]
     Active Substance: ROFLUMILAST
     Dosage: 500 MCG
  8. DEXILANT [Concomitant]
     Active Substance: DEXLANSOPRAZOLE
  9. FLOVENT HFA [Concomitant]
     Active Substance: FLUTICASONE PROPIONATE
     Dosage: 110 MCG/AC
  10. FLUCONAZOLE [Concomitant]
     Active Substance: FLUCONAZOLE
  11. HYDROCODONE [Concomitant]
     Active Substance: HYDROCODONE
     Dosage: 10-32 MG
  12. IPRATROPIUM [Concomitant]
     Active Substance: IPRATROPIUM
     Dosage: SOL 0.5-2.5
  13. LEVOFLOXACIN [Concomitant]
     Active Substance: LEVOFLOXACIN
  14. MONTELUKAST [Concomitant]
     Active Substance: MONTELUKAST SODIUM
  15. RANITIDINE HYDROCHLORIDE [Concomitant]
     Active Substance: RANITIDINE HYDROCHLORIDE
  16. VITAMIN D [Concomitant]
     Active Substance: VITAMIN D NOS
     Dosage: E CAP 50000 UNI

REACTIONS (2)
  - Off label use [Unknown]
  - No adverse event [Unknown]
